FAERS Safety Report 6971931-3 (Version None)
Quarter: 2010Q3

REPORT INFORMATION
  Report Type: 
  Country: None (occurrence: None)
  Receive Date: 20100908
  Receipt Date: 20100908
  Transmission Date: 20110219
  Serious: Yes (Other)
  Sender: FDA-Public Use
  Company Number: None

PATIENT
  Age: 37 Year
  Sex: Male
  Weight: 90.7194 kg

DRUGS (1)
  1. AVELOX [Suspect]
     Indication: BACTERIAL INFECTION
     Dosage: 1 PILL PER DAY PO
     Route: 048
     Dates: start: 20100810, end: 20100815

REACTIONS (4)
  - ACTIVITIES OF DAILY LIVING IMPAIRED [None]
  - EXOSTOSIS [None]
  - GENERAL PHYSICAL HEALTH DETERIORATION [None]
  - TENDON PAIN [None]
